FAERS Safety Report 6301194-3 (Version None)
Quarter: 2009Q3

REPORT INFORMATION
  Report Type: 
  Country: None (occurrence: None)
  Receive Date: 20090807
  Receipt Date: 20090729
  Transmission Date: 20100115
  Serious: Yes (Hospitalization, Other)
  Sender: FDA-Public Use
  Company Number: PHHO2009JP04882

PATIENT
  Sex: Male
  Weight: 62 kg

DRUGS (5)
  1. EXELON [Suspect]
     Indication: DEMENTIA ALZHEIMER'S TYPE
     Dosage: UNK
     Route: 062
     Dates: start: 20080419, end: 20090422
  2. AMARYL [Suspect]
     Indication: DIABETES MELLITUS
     Dosage: 1 MG DAILY
     Dates: end: 20090404
  3. CONIEL [Suspect]
     Indication: HYPERTENSION
     Dosage: 4 MG DAILY
     Dates: end: 20090404
  4. URINORM [Suspect]
     Indication: HYPERURICAEMIA
     Dosage: 25 MG DAILY
     Dates: end: 20090404
  5. YOKUKAN-SAN [Suspect]
     Indication: INSOMNIA
     Dosage: UNK
     Dates: start: 20090116, end: 20090404

REACTIONS (6)
  - ABDOMINAL PAIN UPPER [None]
  - BLOOD AMYLASE INCREASED [None]
  - DUODENITIS [None]
  - GASTRIC ADENOMA [None]
  - PANCREATIC CARCINOMA [None]
  - URINE AMYLASE INCREASED [None]
